FAERS Safety Report 20649538 (Version 1)
Quarter: 2022Q1

REPORT INFORMATION
  Report Type: Spontaneous
  Country: CN (occurrence: CN)
  Receive Date: 20220329
  Receipt Date: 20220329
  Transmission Date: 20220423
  Serious: Yes (Other)
  Sender: FDA-Public Use
  Company Number: CN-PFIZER INC-202200475313

PATIENT
  Age: 50 Year
  Sex: Female
  Weight: 53 kg

DRUGS (1)
  1. AZITHROMYCIN [Suspect]
     Active Substance: AZITHROMYCIN
     Indication: Mycoplasma test positive
     Dosage: UNK
     Route: 048
     Dates: start: 20220312

REACTIONS (2)
  - Cough [Unknown]
  - Productive cough [Unknown]

NARRATIVE: CASE EVENT DATE: 20220315
